FAERS Safety Report 10254145 (Version 1)
Quarter: 2014Q2

REPORT INFORMATION
  Report Type: Spontaneous
  Country: KR (occurrence: KR)
  Receive Date: 20140624
  Receipt Date: 20140624
  Transmission Date: 20141212
  Serious: Yes (Other)
  Sender: FDA-Public Use
  Company Number: KR-009507513-1406KOR009385

PATIENT
  Age: 68 Year
  Sex: Male
  Weight: 66 kg

DRUGS (2)
  1. FOSAMAX TABLET (ALENDRONATE SODIUM) [Suspect]
     Indication: OSTEOPOROSIS
     Dosage: DAILY DOSAGE-UNKNOWN
     Route: 048
     Dates: start: 2007, end: 2010
  2. SPIRIVA [Concomitant]
     Indication: EMPHYSEMA
     Route: 055

REACTIONS (3)
  - Sequestrectomy [Recovered/Resolved]
  - Osteonecrosis of jaw [Recovered/Resolved]
  - Tooth extraction [Unknown]
